FAERS Safety Report 12539716 (Version 4)
Quarter: 2016Q3

REPORT INFORMATION
  Report Type: Report from Study
  Country: NO (occurrence: NO)
  Receive Date: 20160708
  Receipt Date: 20160829
  Transmission Date: 20161109
  Serious: Yes (Other)
  Sender: FDA-Public Use
  Company Number: NO-BAYER-2016-131010

PATIENT
  Age: 46 Year
  Sex: Female

DRUGS (3)
  1. XYLOCAIN CO2 [Concomitant]
     Indication: UTERINE CERVIX DILATION PROCEDURE
     Dosage: UNK
     Dates: start: 20160628, end: 20160628
  2. MIRENA [Suspect]
     Active Substance: LEVONORGESTREL
     Indication: CONTRACEPTION
     Dosage: 20 MCG/24HR, CONT
     Route: 015
     Dates: start: 2006, end: 2016
  3. MIRENA [Suspect]
     Active Substance: LEVONORGESTREL
     Indication: CONTRACEPTION
     Dosage: 20 MCG/24HR, CONT
     Route: 015
     Dates: start: 20160628, end: 20160628

REACTIONS (7)
  - Device use issue [None]
  - Cervical conisation [None]
  - Device damage [None]
  - Cervical dysplasia [None]
  - Device difficult to use [None]
  - Procedural haemorrhage [Recovered/Resolved]
  - Complication of device insertion [None]

NARRATIVE: CASE EVENT DATE: 2010
